FAERS Safety Report 6229719 (Version 2)
Quarter: 2012Q4

REPORT INFORMATION
  Report Type: 
  Country: DE (occurrence: DE)
  Receive Date: 20070202
  Receipt Date: 20121210
  Transmission Date: 20130627
  Serious: Yes (Other)
  Sender: FDA-Public Use
  Company Number: DE-JNJFOC-20070200474

PATIENT
  Age: 44 Year
  Sex: Male

DRUGS (6)
  1. IBUPROFEN [Suspect]
     Indication: RESPIRATORY TRACT INFECTION
     Route: 048
     Dates: start: 200611, end: 200611
  2. IBUPROFEN [Suspect]
     Indication: BRONCHITIS
     Route: 048
     Dates: start: 200611, end: 200611
  3. UNACID [Suspect]
     Indication: RESPIRATORY TRACT INFECTION
     Route: 048
     Dates: start: 200611, end: 200611
  4. UNACID [Suspect]
     Indication: BRONCHITIS
     Route: 048
     Dates: start: 200611, end: 200611
  5. HEDERA HELIX [Suspect]
     Indication: PRODUCT USED FOR UNKNOWN INDICATION
     Route: 048
  6. PARACETAMOL [Suspect]
     Indication: PRODUCT USED FOR UNKNOWN INDICATION
     Dates: start: 20061110

REACTIONS (13)
  - Hallucination [Recovered/Resolved]
  - Liver function test abnormal [Recovered/Resolved]
  - Pain in extremity [Unknown]
  - Hearing impaired [Not Recovered/Not Resolved]
  - Intraocular pressure increased [Recovered/Resolved]
  - Panophthalmitis [Recovered/Resolved]
  - Confusional state [Unknown]
  - Aggression [Recovered/Resolved]
  - Myalgia [Not Recovered/Not Resolved]
  - Insomnia [Recovered/Resolved]
  - Headache [Recovered/Resolved]
  - Bacterial infection [Recovered/Resolved]
  - Agitation [Unknown]
